FAERS Safety Report 8855351 (Version 1)
Quarter: 2012Q4

REPORT INFORMATION
  Report Type: 
  Country: US (occurrence: US)
  Receive Date: 20121023
  Receipt Date: 20121023
  Transmission Date: 20130627
  Serious: No
  Sender: FDA-Public Use
  Company Number: US-AMGEN-USASP2012056627

PATIENT
  Age: 70 Year
  Sex: Male
  Weight: 95.24 kg

DRUGS (8)
  1. ENBREL [Suspect]
     Indication: PSORIASIS
     Dosage: 50 mg, qwk
     Dates: start: 20120824
  2. VERAPAMIL [Concomitant]
     Dosage: 100 mg ER
  3. QUINAPRIL [Concomitant]
     Dosage: 10 mg, UNK
     Route: 048
  4. HYDROXYZINE HCL [Concomitant]
     Dosage: 50 mg, UNK
  5. SIMVASTATIN [Concomitant]
     Dosage: 20 mg, UNK
  6. ASPIRIN [Concomitant]
     Dosage: 81 mg, UNK
  7. MULTIVITAMIN                       /00097801/ [Concomitant]
  8. IRON [Concomitant]
     Dosage: 50 mg, UNK

REACTIONS (2)
  - Dry skin [Not Recovered/Not Resolved]
  - Pruritus generalised [Not Recovered/Not Resolved]
